FAERS Safety Report 6245145-9 (Version None)
Quarter: 2009Q2

REPORT INFORMATION
  Report Type: 
  Country: None (occurrence: None)
  Receive Date: 20090619
  Receipt Date: 20090511
  Transmission Date: 20091009
  Serious: No
  Sender: FDA-Public Use
  Company Number: ALL1-2009-01338

PATIENT
  Age: 50 Year
  Sex: Female
  Weight: 104.3 kg

DRUGS (8)
  1. VYVANSE [Suspect]
     Indication: ATTENTION DEFICIT/HYPERACTIVITY DISORDER
     Dosage: 60 MG, 1X/DAY;QD; ORAL
     Route: 048
     Dates: start: 20080401, end: 20090201
  2. ADDERALL XR (AMFETAMINE ASPARTATE, AMFETAMINE SULFATE, DEXAMFETAMINE S [Concomitant]
  3. AMBIEN [Concomitant]
  4. EFFEXOR /01233801/(VENLAFAXINE) TABLET [Concomitant]
  5. ZOCOR [Concomitant]
  6. SYNTHROID (LEVOTHYROXINE SODIUM) TABLET [Concomitant]
  7. VALTREX (VALACICLOVIR HYDROCHLORIDE) CAPSULE [Concomitant]
  8. UNKNOWN SLEEPING MEDICINE [Concomitant]

REACTIONS (2)
  - DRUG INEFFECTIVE [None]
  - WEIGHT INCREASED [None]
